FAERS Safety Report 6436372-6 (Version None)
Quarter: 2009Q4

REPORT INFORMATION
  Report Type: 
  Country: None (occurrence: None)
  Receive Date: 20091111
  Receipt Date: 20091029
  Transmission Date: 20100525
  Serious: Yes (Other)
  Sender: FDA-Public Use
  Company Number: PHHY2009IT09416

PATIENT
  Age: 36 Year
  Sex: Female

DRUGS (2)
  1. NILOTINIB [Suspect]
     Dosage: 400 MG, BID
  2. NILOTINIB [Suspect]
     Dosage: 200 MG, BID

REACTIONS (4)
  - BRONCHITIS [None]
  - CANDIDIASIS [None]
  - GASTRITIS [None]
  - PSEUDOMONAS INFECTION [None]
